FAERS Safety Report 4997439-2 (Version None)
Quarter: 2006Q2

REPORT INFORMATION
  Report Type: 
  Country: None (occurrence: None)
  Receive Date: 20060509
  Receipt Date: 20060126
  Transmission Date: 20061013
  Serious: Yes (Hospitalization, Other)
  Sender: FDA-Public Use
  Company Number: US-MERCK-0601USA03605

PATIENT
  Age: 49 Year
  Sex: Male
  Weight: 145 kg

DRUGS (20)
  1. COMBIVENT [Concomitant]
     Route: 065
  2. FLOVENT [Concomitant]
     Route: 065
  3. SULFAMETHOXAZOLE AND TRIMETHOPRIM [Concomitant]
     Route: 065
  4. VANCENASE [Concomitant]
     Route: 065
  5. PREDNISONE [Concomitant]
     Route: 065
  6. VANCERIL [Concomitant]
     Route: 065
  7. ERY-TAB [Concomitant]
     Route: 065
  8. VIOXX [Suspect]
     Indication: OSTEOARTHRITIS
     Route: 048
     Dates: start: 19990901, end: 20040301
  9. ALLEGRA [Concomitant]
     Route: 065
  10. DILANTIN [Concomitant]
     Route: 065
  11. MORPHINE SULFATE [Concomitant]
     Route: 065
  12. OXYCONTIN [Concomitant]
     Route: 065
  13. FOLIC ACID [Concomitant]
     Route: 065
  14. NEURONTIN [Concomitant]
     Route: 065
  15. CLARITIN [Concomitant]
     Route: 065
  16. ZYRTEC [Concomitant]
     Route: 065
  17. PERCOCET [Concomitant]
     Route: 065
  18. HYDROCORTISONE ACETATE [Concomitant]
     Route: 065
  19. PROTONIX [Concomitant]
     Route: 065
  20. ACETAMINOPHEN AND HYDROCODONE BITARTRATE [Concomitant]
     Route: 065

REACTIONS (15)
  - ADRENAL ADENOMA [None]
  - ANGINA PECTORIS [None]
  - BLOOD CHOLESTEROL INCREASED [None]
  - CARDIAC DISORDER [None]
  - CORONARY ARTERY DISEASE [None]
  - DEPRESSION [None]
  - DIARRHOEA [None]
  - DYSPNOEA [None]
  - GASTROENTERITIS [None]
  - HYPERTENSION [None]
  - LUNG NEOPLASM [None]
  - MYOCARDIAL INFARCTION [None]
  - NON-CARDIAC CHEST PAIN [None]
  - PEPTIC ULCER [None]
  - STOMACH DISCOMFORT [None]
